FAERS Safety Report 26005203 (Version 1)
Quarter: 2025Q4

REPORT INFORMATION
  Report Type: Spontaneous
  Country: US (occurrence: US)
  Receive Date: 20251106
  Receipt Date: 20251106
  Transmission Date: 20260117
  Serious: No
  Sender: HIKMA
  Company Number: US-HIKMA PHARMACEUTICALS USA INC.-US-H14001-24-01839

PATIENT
  Sex: Female

DRUGS (1)
  1. LISDEXAMFETAMINE [Suspect]
     Active Substance: LISDEXAMFETAMINE
     Indication: Product used for unknown indication
     Dosage: 20MG OR SOMETIMES 30 MG
     Route: 065

REACTIONS (1)
  - Product dose omission issue [Unknown]
